FAERS Safety Report 4266002-3 (Version None)
Quarter: 2004Q1

REPORT INFORMATION
  Report Type: 
  Country: None (occurrence: None)
  Receive Date: 20040106
  Receipt Date: 20031226
  Transmission Date: 20041129
  Serious: Yes (Other)
  Sender: FDA-Public Use
  Company Number: 228556

PATIENT
  Age: 20 Year
  Sex: Female
  Weight: 54 kg

DRUGS (2)
  1. MIXTARD HUMAN 70/30 [Suspect]
     Indication: DIABETES MELLITUS
     Dosage: SUBCUTANEOUS
     Route: 058
     Dates: start: 20020401
  2. LEVOTHYROXINE SODIUM [Concomitant]

REACTIONS (5)
  - ABDOMINAL PAIN [None]
  - INJECTION SITE PRURITUS [None]
  - PRURITUS [None]
  - RESPIRATORY DISORDER [None]
  - RHINITIS ALLERGIC [None]
